FAERS Safety Report 4708916-3 (Version None)
Quarter: 2005Q3

REPORT INFORMATION
  Report Type: 
  Country: None (occurrence: None)
  Receive Date: 20050707
  Receipt Date: 20041014
  Transmission Date: 20060218
  Serious: Yes (Life-Threatening, Hospitalization, Disabling)
  Sender: FDA-Public Use
  Company Number: DE-MERCK-0410DEU00468

PATIENT
  Age: 55 Year
  Sex: Female
  Weight: 70 kg

DRUGS (11)
  1. VIOXX [Suspect]
     Indication: MUSCULOSKELETAL PAIN
     Route: 048
     Dates: start: 20020715, end: 20020813
  2. VIOXX [Suspect]
     Route: 048
     Dates: start: 20021129, end: 20030601
  3. VIOXX [Suspect]
     Route: 048
     Dates: start: 20011101, end: 20010101
  4. VIOXX [Suspect]
     Route: 048
     Dates: start: 20020101, end: 20020101
  5. VIOXX [Suspect]
     Indication: ROTATOR CUFF SYNDROME
     Route: 048
     Dates: start: 20020715, end: 20020813
  6. VIOXX [Suspect]
     Route: 048
     Dates: start: 20021129, end: 20030601
  7. VIOXX [Suspect]
     Route: 048
     Dates: start: 20011101, end: 20010101
  8. VIOXX [Suspect]
     Route: 048
     Dates: start: 20020101, end: 20020101
  9. HEPARIN [Concomitant]
     Route: 051
     Dates: start: 20020715, end: 20020807
  10. GABAPENTIN [Concomitant]
     Indication: NEURALGIA
     Route: 048
     Dates: start: 20020606, end: 20040801
  11. ESOMEPRAZOLE MAGNESIUM [Concomitant]
     Route: 048
     Dates: start: 20010101

REACTIONS (6)
  - BURSITIS [None]
  - CHEST DISCOMFORT [None]
  - CIRCULATORY COLLAPSE [None]
  - EPIGASTRIC DISCOMFORT [None]
  - PULMONARY EMBOLISM [None]
  - THROMBOSIS [None]
